APPROVED DRUG PRODUCT: BREXPIPRAZOLE
Active Ingredient: BREXPIPRAZOLE
Strength: 0.5MG
Dosage Form/Route: TABLET;ORAL
Application: A213731 | Product #002
Applicant: APOTEX INC
Approved: Feb 24, 2025 | RLD: No | RS: No | Type: DISCN